FAERS Safety Report 24444975 (Version 2)
Quarter: 2024Q4

REPORT INFORMATION
  Report Type: Report from Study
  Country: US (occurrence: US)
  Receive Date: 20241016
  Receipt Date: 20241017
  Transmission Date: 20250114
  Serious: No
  Sender: ROCHE
  Company Number: US-ROCHE-3052629

PATIENT
  Age: 54 Year
  Sex: Male
  Weight: 80.9 kg

DRUGS (7)
  1. RITUXAN [Suspect]
     Active Substance: RITUXIMAB
     Indication: Immune system disorder
     Dosage: DOSE:1000 MG DAY 1 AND 15 INTRAVENOUS AND CONTINUE FOR 6 MONTHS.
     Route: 041
  2. RITUXAN [Suspect]
     Active Substance: RITUXIMAB
     Indication: Diabetic retinopathy
     Dosage: FREQUENCY: QMONTH
     Route: 042
     Dates: start: 20220531
  3. CELLCEPT [Suspect]
     Active Substance: MYCOPHENOLATE MOFETIL
     Indication: Product used for unknown indication
     Dosage: DOSE WAS INCREASED TO 1500 MG TWICE DAILY.
     Route: 048
  4. CHOLECALCIFEROL [Concomitant]
     Active Substance: CHOLECALCIFEROL
     Dosage: FREQUENCY TEXT:QDAY
     Route: 065
  5. FLUTICASONE [Concomitant]
     Active Substance: FLUTICASONE
     Dosage: FREQUENCY TEXT:QDAY
     Route: 065
     Dates: start: 20220531
  6. LEVOTHYROXINE [Concomitant]
     Active Substance: LEVOTHYROXINE
     Route: 048
     Dates: start: 20220531
  7. SUMATRIPTAN [Concomitant]
     Active Substance: SUMATRIPTAN
     Dosage: FREQUENCY TEXT:ONCE
     Route: 065
     Dates: start: 20220531

REACTIONS (6)
  - Off label use [Unknown]
  - Off label use [Unknown]
  - Palpitations [Unknown]
  - Fatigue [Unknown]
  - Musculoskeletal stiffness [Unknown]
  - Albumin globulin ratio increased [Unknown]
